FAERS Safety Report 7349287-6 (Version None)
Quarter: 2011Q1

REPORT INFORMATION
  Report Type: 
  Country: None (occurrence: None)
  Receive Date: 20110304
  Receipt Date: 20110217
  Transmission Date: 20110831
  Serious: Yes (Life-Threatening, Hospitalization)
  Sender: FDA-Public Use
  Company Number: FK201100230

PATIENT
  Age: 61 Year
  Sex: Female

DRUGS (1)
  1. HEPARIN SODIUM INJECTION [Suspect]
     Indication: ANTICOAGULATION DRUG LEVEL THERAPEUTIC
     Dosage: CONTINUOUS 24 HOUR INFUSION

REACTIONS (3)
  - RETROPERITONEAL HAEMATOMA [None]
  - POST PROCEDURAL COMPLICATION [None]
  - ABDOMINAL COMPARTMENT SYNDROME [None]
